FAERS Safety Report 25343530 (Version 2)
Quarter: 2025Q2

REPORT INFORMATION
  Report Type: Spontaneous
  Country: BR (occurrence: BR)
  Receive Date: 20250521
  Receipt Date: 20250525
  Transmission Date: 20250716
  Serious: Yes (Hospitalization)
  Sender: SAREPTA THERAPEUTICS
  Company Number: BR-SAREPTA THERAPEUTICS INC.-SRP2025-005912

PATIENT

DRUGS (1)
  1. ELEVIDYS [Suspect]
     Active Substance: DELANDISTROGENE MOXEPARVOVEC-ROKL
     Indication: Duchenne muscular dystrophy
     Route: 065
     Dates: start: 20250213, end: 20250213

REACTIONS (11)
  - Gamma-glutamyltransferase increased [Recovering/Resolving]
  - Hepatitis [Unknown]
  - Aspartate aminotransferase increased [Recovering/Resolving]
  - Alanine aminotransferase increased [Recovering/Resolving]
  - Nausea [Recovered/Resolved]
  - Decreased appetite [Recovered/Resolved]
  - Abdominal pain upper [Recovered/Resolved]
  - Pollakiuria [Unknown]
  - Urinary incontinence [Unknown]
  - Depressed mood [Unknown]
  - Irritability [Unknown]

NARRATIVE: CASE EVENT DATE: 20250215
